FAERS Safety Report 6144603-5 (Version None)
Quarter: 2009Q2

REPORT INFORMATION
  Report Type: 
  Country: None (occurrence: None)
  Receive Date: 20090406
  Receipt Date: 20090331
  Transmission Date: 20091009
  Serious: Yes (Hospitalization, Other)
  Sender: FDA-Public Use
  Company Number: US-PFIZER INC-2005091438

PATIENT
  Sex: Female

DRUGS (7)
  1. PROVERA [Suspect]
     Indication: HORMONE REPLACEMENT THERAPY
     Route: 048
     Dates: start: 19750101, end: 20020701
  2. MEDROXYPROGESTERONE AND MEDROXYPROGESTERONE ACETATE [Suspect]
     Indication: HORMONE REPLACEMENT THERAPY
     Route: 065
  3. OGEN [Suspect]
     Indication: HORMONE REPLACEMENT THERAPY
     Route: 065
     Dates: start: 19750101, end: 20020701
  4. MEDROXYPROGESTERONE ACETATE [Suspect]
     Indication: HORMONE REPLACEMENT THERAPY
     Route: 065
  5. PREMARIN [Suspect]
     Indication: HORMONE REPLACEMENT THERAPY
     Route: 065
  6. PREMPRO [Suspect]
     Indication: HORMONE REPLACEMENT THERAPY
     Route: 065
  7. FOSAMAX [Concomitant]
     Indication: OSTEOPENIA

REACTIONS (1)
  - BREAST CANCER FEMALE [None]
